FAERS Safety Report 10021323 (Version 1)
Quarter: 2014Q1

REPORT INFORMATION
  Report Type: Spontaneous
  Country: US (occurrence: None)
  Receive Date: 20140318
  Receipt Date: 20140318
  Transmission Date: 20141002
  Serious: Yes (Other)
  Sender: FDA-Public Use
  Company Number: None

PATIENT
  Sex: Female
  Weight: 44 kg

DRUGS (1)
  1. MAXALT 10MG TABLETTEN [Suspect]
     Indication: MIGRAINE
     Dosage: 10MG PRN ONE PO PRN?DATES OF USE: BEFORE 2009
     Route: 048

REACTIONS (2)
  - Dysarthria [None]
  - Malaise [None]
